FAERS Safety Report 7618920-3 (Version None)
Quarter: 2011Q3

REPORT INFORMATION
  Report Type: 
  Country: None (occurrence: None)
  Receive Date: 20110718
  Receipt Date: 20110714
  Transmission Date: 20111222
  Serious: No
  Sender: FDA-Public Use
  Company Number: US-B.I. PHARMACEUTICALS,INC./RIDGEFIELD-2011-BP-17712BP

PATIENT
  Sex: Female

DRUGS (8)
  1. BYSTOLIC [Concomitant]
     Indication: HYPERTENSION
  2. PRADAXA [Suspect]
     Indication: ATRIAL FIBRILLATION
     Dosage: 300 MG
     Route: 048
     Dates: start: 20110323, end: 20110330
  3. NASONEX [Concomitant]
     Indication: CHRONIC OBSTRUCTIVE PULMONARY DISEASE
  4. COUMADIN [Concomitant]
     Indication: ATRIAL FIBRILLATION
  5. AMIODARONE HCL [Concomitant]
     Indication: ATRIAL FIBRILLATION
  6. SINGULAIR [Concomitant]
     Indication: CHRONIC OBSTRUCTIVE PULMONARY DISEASE
  7. NEXIUM [Concomitant]
     Indication: DYSPEPSIA
  8. CRESTOR [Concomitant]
     Indication: BLOOD CHOLESTEROL INCREASED

REACTIONS (2)
  - ASTHENIA [None]
  - DIZZINESS [None]
